FAERS Safety Report 12372428 (Version 3)
Quarter: 2016Q2

REPORT INFORMATION
  Report Type: Spontaneous
  Country: CH (occurrence: CH)
  Receive Date: 20160516
  Receipt Date: 20160629
  Transmission Date: 20160815
  Serious: Yes (Hospitalization)
  Sender: FDA-Public Use
  Company Number: CH-TEVA-658747ISR

PATIENT
  Age: 68 Year
  Sex: Female

DRUGS (5)
  1. PANTOPRAZOLE [Suspect]
     Active Substance: PANTOPRAZOLE SODIUM
     Route: 065
  2. BISOPROLOL [Suspect]
     Active Substance: BISOPROLOL
     Route: 065
  3. CANDESARTAN [Suspect]
     Active Substance: CANDESARTAN
     Route: 065
  4. VITAMIN B [Suspect]
     Active Substance: VITAMIN B
     Route: 065
  5. RIVAROXABAN [Concomitant]
     Active Substance: RIVAROXABAN
     Route: 065

REACTIONS (1)
  - Hypomagnesaemia [Unknown]
